FAERS Safety Report 20558892 (Version 1)
Quarter: 2022Q1

REPORT INFORMATION
  Report Type: Report from Study
  Country: GB (occurrence: GB)
  Receive Date: 20220307
  Receipt Date: 20220307
  Transmission Date: 20220423
  Serious: Yes (Hospitalization, Other)
  Sender: FDA-Public Use
  Company Number: None

PATIENT
  Age: 46 Year
  Sex: Female

DRUGS (40)
  1. DOCETAXEL [Suspect]
     Active Substance: DOCETAXEL
     Indication: Breast cancer metastatic
     Route: 042
     Dates: start: 20150512
  2. PERTUZUMAB [Suspect]
     Active Substance: PERTUZUMAB
     Indication: Breast cancer
     Route: 042
     Dates: start: 20150420
  3. TRASTUZUMAB [Suspect]
     Active Substance: TRASTUZUMAB
     Indication: Breast cancer
     Route: 042
     Dates: start: 20150420
  4. XGEVA [Suspect]
     Active Substance: DENOSUMAB
     Indication: Product used for unknown indication
     Dosage: 120 MILLIGRAM, QMO
     Dates: start: 20150623
  5. PIPERACILLIN SODIUM\TAZOBACTAM SODIUM [Concomitant]
     Active Substance: PIPERACILLIN SODIUM\TAZOBACTAM SODIUM
     Indication: Neutropenic sepsis
     Route: 042
     Dates: start: 20180218, end: 20180220
  6. VASELINE PURE [Concomitant]
     Active Substance: PETROLATUM
     Indication: Epistaxis
     Route: 061
     Dates: start: 20181112
  7. ZOPICLONE [Concomitant]
     Active Substance: ZOPICLONE
     Indication: Sleep disorder
     Route: 048
     Dates: start: 20151019
  8. ACYCLOVIR [Concomitant]
     Active Substance: ACYCLOVIR
     Indication: Genital herpes
     Route: 048
     Dates: start: 20170211, end: 20170218
  9. CALCIUM CARBONATE\CHOLECALCIFEROL [Concomitant]
     Active Substance: CALCIUM CARBONATE\CHOLECALCIFEROL
     Dosage: 1 TABLET
     Route: 048
     Dates: start: 20150623, end: 20150625
  10. AQUEOUS CREAM [Concomitant]
     Route: 061
     Dates: start: 20181112
  11. IBUPROFEN [Concomitant]
     Active Substance: IBUPROFEN
     Indication: Arthralgia
     Route: 048
     Dates: start: 20150420, end: 20150426
  12. CALCEOS [Concomitant]
     Active Substance: CALCIUM CARBONATE\CHOLECALCIFEROL
     Dosage: 1 TABLET
     Route: 048
     Dates: start: 20150713, end: 20150824
  13. AMOXICILLIN\CLAVULANATE POTASSIUM [Concomitant]
     Active Substance: AMOXICILLIN\CLAVULANATE POTASSIUM
     Indication: Influenza
     Dosage: 625 MG, Q3D
     Route: 048
     Dates: start: 20180220, end: 20180225
  14. CODEINE [Concomitant]
     Active Substance: CODEINE
     Indication: Arthralgia
     Route: 065
     Dates: start: 20151221, end: 20160425
  15. CODEINE PHOSPHATE [Concomitant]
     Active Substance: CODEINE PHOSPHATE
     Indication: Arthralgia
     Route: 048
     Dates: start: 20160816
  16. DENOSUMAB [Concomitant]
     Active Substance: DENOSUMAB
     Route: 048
     Dates: start: 20180115
  17. DOMPERIDONE [Concomitant]
     Active Substance: DOMPERIDONE
     Indication: Nausea
     Route: 048
     Dates: start: 20150420, end: 20150427
  18. LANOLIN\LIGHT MINERAL OIL\PARAFFIN [Concomitant]
     Active Substance: LANOLIN\LIGHT MINERAL OIL\PARAFFIN
     Indication: Pruritus
     Route: 061
     Dates: start: 20150515
  19. ENOXAPARIN [Concomitant]
     Active Substance: ENOXAPARIN
     Indication: Influenza
     Route: 058
     Dates: start: 20180219, end: 20180220
  20. IBUPROFEN [Concomitant]
     Active Substance: IBUPROFEN
     Indication: Spinal pain
     Route: 048
     Dates: start: 20161229
  21. POLYETHYLENE GLYCOL 3350\POTASSIUM CHLORIDE\SODIUM BICARBONATE\SODIUM [Concomitant]
     Active Substance: POLYETHYLENE GLYCOL 3350\POTASSIUM CHLORIDE\SODIUM BICARBONATE\SODIUM CHLORIDE
     Indication: Influenza
     Dosage: 1 SACHET
     Route: 048
     Dates: start: 20180219, end: 20180220
  22. LOPERAMIDE [Concomitant]
     Active Substance: LOPERAMIDE
     Indication: Diarrhoea
     Route: 048
     Dates: start: 20150516, end: 20150516
  23. MEGACE [Concomitant]
     Active Substance: MEGESTROL ACETATE
     Indication: Menopausal symptoms
     Route: 048
     Dates: start: 20150601
  24. NAPROXEN [Concomitant]
     Active Substance: NAPROXEN
     Indication: Arthralgia
     Route: 048
     Dates: start: 2015, end: 20160314
  25. OMEPRAZOLE [Concomitant]
     Active Substance: OMEPRAZOLE
     Indication: Gastritis
     Route: 048
     Dates: start: 20150622, end: 20150713
  26. ACETAMINOPHEN [Concomitant]
     Active Substance: ACETAMINOPHEN
     Indication: Arthralgia
     Route: 048
     Dates: start: 20150427, end: 20150505
  27. RANITIDINE [Concomitant]
     Active Substance: RANITIDINE
     Indication: Gastrooesophageal reflux disease
     Route: 048
     Dates: start: 20150421
  28. TAMIFLU [Concomitant]
     Active Substance: OSELTAMIVIR PHOSPHATE
     Indication: Influenza
     Route: 048
     Dates: start: 20180219, end: 20180226
  29. PIPERACILLIN SODIUM\TAZOBACTAM SODIUM [Concomitant]
     Active Substance: PIPERACILLIN SODIUM\TAZOBACTAM SODIUM
     Indication: Neutropenic sepsis
     Route: 042
     Dates: start: 20150429
  30. AMOXICILLIN [Concomitant]
     Active Substance: AMOXICILLIN
     Indication: Product used for unknown indication
     Route: 065
  31. METHYL SALICYLATE [Concomitant]
     Active Substance: METHYL SALICYLATE
     Indication: Product used for unknown indication
     Dosage: UNK (AS NECESSARY)
     Route: 048
     Dates: start: 20161229
  32. CLAVULANATE POTASSIUM [Concomitant]
     Active Substance: CLAVULANATE POTASSIUM
     Dosage: 1875 MILLIGRAM, QD
     Route: 048
     Dates: start: 20180225
  33. AMOXIL [Concomitant]
     Active Substance: AMOXICILLIN
     Indication: Chest pain
     Dates: start: 20171227, end: 20180102
  34. GAVISCON [Concomitant]
     Active Substance: ALUMINUM HYDROXIDE\MAGNESIUM CARBONATE
     Indication: Gastrooesophageal reflux disease
     Dosage: 20 MILLILITER, AS NECESSARY (AS NEEDED)
     Route: 048
     Dates: start: 201505
  35. HYDROCORTISONE [Concomitant]
     Active Substance: HYDROCORTISONE
     Indication: Eczema
     Dosage: UNK UNK, AS NECESSARY (AS NEEDED)
     Route: 061
  36. SENNA [Concomitant]
     Active Substance: SENNA LEAF\SENNOSIDES\SENNOSIDES A AND B
     Indication: Influenza
     Dosage: UNK, QD
     Route: 048
     Dates: start: 20180209, end: 20180220
  37. SODIUM CHLORIDE [Concomitant]
     Active Substance: SODIUM CHLORIDE
     Indication: Abdominal pain
     Dosage: 1000 MILLILITER, AS NECESSARY (0.9%, AS NEEDED)
     Route: 042
     Dates: start: 20160125, end: 20160125
  38. AVEENO [Concomitant]
     Active Substance: DIMETHICONE\HOMOSALATE\OCTINOXATE\OCTISALATE\TITANIUM DIOXIDE
     Route: 061
     Dates: start: 20190114
  39. COVID-19 VACCINE [Concomitant]
  40. MEGESTROL ACETATE [Concomitant]
     Active Substance: MEGESTROL ACETATE
     Indication: Menopausal symptoms
     Dates: start: 20150601

REACTIONS (24)
  - Pruritus [Recovered/Resolved]
  - Diarrhoea [Recovered/Resolved]
  - Dry eye [Recovered/Resolved]
  - Arthralgia [Recovered/Resolved with Sequelae]
  - Dry skin [Not Recovered/Not Resolved]
  - Rash [Recovered/Resolved]
  - Eczema [Recovered/Resolved]
  - Gastritis [Recovered/Resolved]
  - Mood swings [Recovered/Resolved]
  - Gastrooesophageal reflux disease [Recovered/Resolved]
  - Sleep disorder [Unknown]
  - Night sweats [Not Recovered/Not Resolved]
  - Ovarian cyst [Recovered/Resolved]
  - Glossodynia [Unknown]
  - Hypoaesthesia oral [Recovered/Resolved]
  - Neutropenic sepsis [Recovered/Resolved]
  - Constipation [Unknown]
  - Epistaxis [Not Recovered/Not Resolved]
  - Lethargy [Not Recovered/Not Resolved]
  - Dysgeusia [Not Recovered/Not Resolved]
  - Headache [Recovered/Resolved]
  - Decreased appetite [Recovered/Resolved]
  - Nausea [Recovered/Resolved]
  - Abdominal pain [Recovered/Resolved]

NARRATIVE: CASE EVENT DATE: 20150420
